FAERS Safety Report 18379858 (Version 1)
Quarter: 2020Q4

REPORT INFORMATION
  Report Type: Report from Study
  Country: None (occurrence: BR)
  Receive Date: 20201014
  Receipt Date: 20201014
  Transmission Date: 20210114
  Serious: Yes (Hospitalization, Other)
  Sender: FDA-Public Use
  Company Number: BR-ABBVIE-20K-020-3603990-00

PATIENT
  Age: 55 Year
  Sex: Male
  Weight: 81 kg

DRUGS (1)
  1. SKYRIZI [Suspect]
     Active Substance: RISANKIZUMAB-RZAA
     Indication: PSORIASIS
     Dosage: UNSPECIFIED DOSAGE
     Route: 058
     Dates: start: 20191024

REACTIONS (4)
  - Loss of consciousness [Unknown]
  - Road traffic accident [Unknown]
  - Fall [Unknown]
  - Head injury [Unknown]

NARRATIVE: CASE EVENT DATE: 20200830
